FAERS Safety Report 10402384 (Version 1)
Quarter: 2014Q3

REPORT INFORMATION
  Report Type: Spontaneous
  Country: US (occurrence: US)
  Receive Date: 20140822
  Receipt Date: 20140822
  Transmission Date: 20150326
  Serious: Yes (Other)
  Sender: FDA-Public Use
  Company Number: US-TEVA-503610USA

PATIENT
  Sex: Female

DRUGS (1)
  1. CENESTIN [Suspect]
     Active Substance: ESTROGENS, CONJUGATED SYNTHETIC A
     Indication: MENOPAUSAL SYMPTOMS

REACTIONS (2)
  - Haemorrhage [Unknown]
  - Nephrolithiasis [Unknown]
